FAERS Safety Report 12529096 (Version 1)
Quarter: 2016Q3

REPORT INFORMATION
  Report Type: Spontaneous
  Country: US (occurrence: US)
  Receive Date: 20160705
  Receipt Date: 20160705
  Transmission Date: 20161109
  Serious: No
  Sender: FDA-Public Use
  Company Number: GXBR2016US002119

PATIENT
  Age: 66 Year
  Sex: Female
  Weight: 76.64 kg

DRUGS (14)
  1. PROTONIX//PANTOPRAZOLE SODIUM SESQUIHYDRATE [Concomitant]
     Indication: GASTRIC PH INCREASED
     Dosage: 40 MG, QD
     Route: 048
  2. CIPRO [Concomitant]
     Active Substance: CIPROFLOXACIN HYDROCHLORIDE
     Indication: INFECTION
     Dosage: 500 MG, BID
     Route: 065
  3. ZARXIO [Suspect]
     Active Substance: FILGRASTIM-SNDZ
     Indication: PRODUCT USED FOR UNKNOWN INDICATION
     Dosage: 480 UG, UNK
     Route: 065
     Dates: start: 20160118, end: 20160120
  4. ADRIAMYCIN [Concomitant]
     Active Substance: DOXORUBICIN HYDROCHLORIDE
     Indication: BREAST CANCER
     Dosage: 107 MG, ONCE/SINGLE
     Route: 042
     Dates: start: 20160115, end: 20160115
  5. ZOLOFT [Concomitant]
     Active Substance: SERTRALINE HYDROCHLORIDE
     Indication: ANXIETY
     Dosage: 50 MG, QD
     Route: 065
  6. CYTOXAN [Concomitant]
     Active Substance: CYCLOPHOSPHAMIDE
     Indication: BREAST CANCER
     Dosage: 1134 MG, ONCE/SINGLE
     Route: 042
     Dates: start: 20160115, end: 20160115
  7. CYTOXAN [Concomitant]
     Active Substance: CYCLOPHOSPHAMIDE
     Dosage: 1134 MG, ONCE/SINGLE
     Route: 042
     Dates: start: 20160229, end: 20160229
  8. ZARXIO [Suspect]
     Active Substance: FILGRASTIM-SNDZ
     Dosage: 600 UG, UNK
     Route: 065
     Dates: start: 20160121, end: 20160122
  9. CYTOXAN [Concomitant]
     Active Substance: CYCLOPHOSPHAMIDE
     Dosage: 1134 MG, ONCE/SINGLE
     Route: 042
     Dates: start: 20160129, end: 20160129
  10. ADRIAMYCIN [Concomitant]
     Active Substance: DOXORUBICIN HYDROCHLORIDE
     Dosage: 107 MG, ONCE/SINGLE
     Route: 042
     Dates: start: 20160229, end: 20160229
  11. CYTOXAN [Concomitant]
     Active Substance: CYCLOPHOSPHAMIDE
     Dosage: 1134 MG, ONCE/SINGLE
     Route: 042
     Dates: start: 20160212, end: 20160212
  12. ZARXIO [Suspect]
     Active Substance: FILGRASTIM-SNDZ
     Dosage: 480 UG, UNK
     Route: 065
     Dates: start: 20160201, end: 20160202
  13. AMBIEN [Concomitant]
     Active Substance: ZOLPIDEM TARTRATE
     Indication: SLEEP DISORDER
     Dosage: 5 MG, PRN
     Route: 065
  14. ZARXIO [Suspect]
     Active Substance: FILGRASTIM-SNDZ
     Dosage: 600 UG, UNK
     Route: 065
     Dates: start: 20160203, end: 20160205

REACTIONS (1)
  - Rash [Recovered/Resolved]

NARRATIVE: CASE EVENT DATE: 20160218
